FAERS Safety Report 4753666-0 (Version None)
Quarter: 2005Q3

REPORT INFORMATION
  Report Type: 
  Country: None (occurrence: None)
  Receive Date: 20050823
  Receipt Date: 20050513
  Transmission Date: 20060218
  Serious: No
  Sender: FDA-Public Use
  Company Number: 214504

PATIENT
  Sex: Female

DRUGS (1)
  1. RAPTIVA [Suspect]
     Dosage: 0.7 MG/KG

REACTIONS (1)
  - HEADACHE [None]
